FAERS Safety Report 8060206-X (Version None)
Quarter: 2012Q1

REPORT INFORMATION
  Report Type: 
  Country: None (occurrence: None)
  Receive Date: 20120120
  Receipt Date: 20120117
  Transmission Date: 20120608
  Serious: No
  Sender: FDA-Public Use
  Company Number: US-TEVA-318250USA

PATIENT
  Sex: Female

DRUGS (1)
  1. PLAN B ONE-STEP [Suspect]
     Indication: ANXIETY
     Dosage: 1.5 MILLIGRAM;
     Route: 048
     Dates: start: 20120113, end: 20120113

REACTIONS (5)
  - PELVIC PAIN [None]
  - FLATULENCE [None]
  - OFF LABEL USE [None]
  - NAUSEA [None]
  - VOMITING [None]
